FAERS Safety Report 7570783-0 (Version None)
Quarter: 2011Q2

REPORT INFORMATION
  Report Type: 
  Country: None (occurrence: None)
  Receive Date: 20110624
  Receipt Date: 20110610
  Transmission Date: 20111010
  Serious: Yes (Hospitalization)
  Sender: FDA-Public Use
  Company Number: IT-ELI_LILLY_AND_COMPANY-IT201106004116

PATIENT

DRUGS (6)
  1. CALCIUM CARBONATE [Concomitant]
     Dosage: 500 MG, UNK
     Route: 048
     Dates: start: 20101220, end: 20110210
  2. ESOPRAL [Concomitant]
     Dosage: 40 MG, UNK
     Route: 048
     Dates: start: 20101112, end: 20110210
  3. ALIMTA [Suspect]
     Indication: LUNG ADENOCARCINOMA
     Dosage: 850 EVERY THREE WEEKS
     Route: 042
     Dates: start: 20101222, end: 20110112
  4. FOLIC ACID [Concomitant]
     Dosage: 300 UG, UNK
     Route: 048
     Dates: start: 20101221, end: 20110210
  5. ZOMETA [Concomitant]
     Dosage: 4 MG, EVERY FOUR WEEKS
     Route: 042
     Dates: start: 20101221, end: 20110208
  6. DEXAMETHASONE [Concomitant]
     Dosage: 16 MG, UNK
     Route: 048
     Dates: start: 20101112, end: 20110210

REACTIONS (1)
  - ANAL FISTULA [None]
